FAERS Safety Report 21842833 (Version 1)
Quarter: 2023Q1

REPORT INFORMATION
  Report Type: Spontaneous
  Country: US (occurrence: US)
  Receive Date: 20230110
  Receipt Date: 20230110
  Transmission Date: 20230418
  Serious: Yes (Other)
  Sender: FDA-Public Use
  Company Number: US-SANOFI-01434081

PATIENT
  Age: 62 Year
  Sex: Male

DRUGS (1)
  1. DUPIXENT [Suspect]
     Active Substance: DUPILUMAB
     Indication: Eczema
     Dosage: UNK UNK, QOW
     Dates: start: 2020

REACTIONS (5)
  - Hyperthyroidism [Unknown]
  - Decreased activity [Unknown]
  - Fatigue [Unknown]
  - Dry skin [Unknown]
  - Pain [Unknown]
